FAERS Safety Report 5949950-5 (Version None)
Quarter: 2008Q4

REPORT INFORMATION
  Report Type: 
  Country: None (occurrence: None)
  Receive Date: 20081112
  Receipt Date: 20081103
  Transmission Date: 20090506
  Serious: Yes (Other)
  Sender: FDA-Public Use
  Company Number: MX-BAYER-200820321LA

PATIENT
  Age: 65 Year
  Sex: Male

DRUGS (1)
  1. LEVITRA [Suspect]
     Indication: ERECTILE DYSFUNCTION
     Route: 048
     Dates: start: 20081026, end: 20081027

REACTIONS (2)
  - ANORGASMIA [None]
  - BLOOD URINE [None]
